FAERS Safety Report 9416232 (Version 3)
Quarter: 2013Q3

REPORT INFORMATION
  Report Type: Spontaneous
  Country: JP (occurrence: None)
  Receive Date: 20130718
  Receipt Date: 20130805
  Transmission Date: 20140515
  Serious: Yes (Hospitalization)
  Sender: FDA-Public Use
  Company Number: SYM-2013-06082

PATIENT
  Age: 65 Year
  Sex: Male

DRUGS (8)
  1. HERBESSER R (DILTIAZEM HYDROCHLORIDE) (CAPSULE) (DILTIAZEM HYDROCHLORIDE) [Suspect]
     Indication: PRODUCT USED FOR UNKNOWN INDICATION
     Route: 048
     Dates: start: 201209
  2. HERBESSER R (DILTIAZEM HYDROCHLORIDE) (CAPSULE) (DILTIAZEM HYDROCHLORIDE) [Suspect]
     Indication: ANGINA PECTORIS
     Route: 048
     Dates: start: 201209
  3. AMIODARONE HYDROCHLORIDE [Concomitant]
  4. LASIX (FUROSEMIDE) [Concomitant]
  5. TAMBOCOR (FLECAINIDE ACETATE) [Concomitant]
  6. MEILAX (ETHYL LOFLAZEPATE) [Concomitant]
  7. WARFARIN [Concomitant]
  8. NEXIUM (ESOMEPRAZOLE) [Concomitant]

REACTIONS (2)
  - Parkinsonism [None]
  - Mobility decreased [None]
